FAERS Safety Report 11130522 (Version 1)
Quarter: 2015Q2

REPORT INFORMATION
  Report Type: Spontaneous
  Country: US (occurrence: US)
  Receive Date: 20150522
  Receipt Date: 20150522
  Transmission Date: 20150821
  Serious: Yes (Death)
  Sender: FDA-Public Use
  Company Number: US-ROCHE-1581698

PATIENT
  Age: 60 Year
  Sex: Male

DRUGS (1)
  1. ZELBORAF [Suspect]
     Active Substance: VEMURAFENIB
     Indication: BRAIN NEOPLASM MALIGNANT
     Route: 048
     Dates: start: 20140813

REACTIONS (1)
  - Death [Fatal]

NARRATIVE: CASE EVENT DATE: 20150520
